FAERS Safety Report 23599268 (Version 1)
Quarter: 2024Q1

REPORT INFORMATION
  Report Type: Report from Study
  Country: JP (occurrence: JP)
  Receive Date: 20240306
  Receipt Date: 20240306
  Transmission Date: 20240410
  Serious: Yes (Other)
  Sender: FDA-Public Use
  Company Number: JP-RECORDATI RARE DISEASE INC.-2024001451

PATIENT

DRUGS (13)
  1. NEOPROFEN [Suspect]
     Active Substance: IBUPROFEN LYSINE
     Indication: Patent ductus arteriosus
     Dosage: 14 MG
     Route: 042
     Dates: start: 20210119, end: 20210119
  2. CALCIUM GLUCONATE [Concomitant]
     Active Substance: CALCIUM GLUCONATE
     Indication: Hypocalcaemia
     Dosage: UNK
     Route: 042
     Dates: start: 20210116, end: 20210121
  3. ISOTONIC SODIUM CHLORIDE SOLUTION [Concomitant]
     Active Substance: SODIUM CHLORIDE
     Indication: Product used for unknown indication
     Dosage: UNK
     Route: 042
     Dates: start: 20210116, end: 20210120
  4. REHABIX K2 [Concomitant]
     Indication: Parenteral nutrition
     Dosage: UNK
     Route: 042
     Dates: start: 20210118, end: 20210123
  5. PLEAMIN P [Concomitant]
     Indication: Parenteral nutrition
     Dosage: UNK
     Route: 042
     Dates: start: 20210117, end: 20210125
  6. OTSUKA MV [Concomitant]
     Indication: Parenteral nutrition
     Dosage: UNK
     Route: 042
     Dates: start: 20210117, end: 20210125
  7. CUPRIC SULFATE\FERRIC CHLORIDE\MANGANESE CHLORIDE\POTASSIUM IODIDE\ZIN [Concomitant]
     Active Substance: CUPRIC SULFATE\FERRIC CHLORIDE\MANGANESE CHLORIDE\POTASSIUM IODIDE\ZINC SULFATE
     Indication: Parenteral nutrition
     Dosage: UNK
     Route: 042
     Dates: start: 20210117, end: 20210125
  8. HEPARIN [Concomitant]
     Active Substance: HEPARIN SODIUM
     Indication: Parenteral nutrition
     Dosage: STRENGTH: 5000 UNITS INJECTION
     Route: 042
     Dates: start: 20210117, end: 20210125
  9. SODIUM CHLORIDE [Concomitant]
     Active Substance: SODIUM CHLORIDE
     Indication: Parenteral nutrition
     Dosage: STRENGTH: 10% INJECTION
     Route: 042
     Dates: start: 20210118, end: 20210121
  10. KCL [Concomitant]
     Active Substance: POTASSIUM CHLORIDE
     Indication: Parenteral nutrition
     Dosage: STRENGTH: 20 MEQ KIT
     Route: 042
     Dates: start: 20210118, end: 20210125
  11. SODIUM PHOSPHATE [Concomitant]
     Active Substance: SODIUM PHOSPHATE
     Indication: Parenteral nutrition
     Dosage: CORRECTIVE INJECTION
     Route: 042
     Dates: start: 20210118, end: 20210125
  12. FUROSEMIDE [Concomitant]
     Active Substance: FUROSEMIDE
     Indication: Left ventricular failure
     Dosage: UNK
     Route: 042
     Dates: start: 20210118, end: 20210122
  13. CANRENOATE POTASSIUM [Concomitant]
     Active Substance: CANRENOATE POTASSIUM
     Indication: Left ventricular failure
     Dosage: INTRAVENOUS USE
     Route: 042
     Dates: start: 20210118, end: 20210121

REACTIONS (1)
  - Intraventricular haemorrhage [Not Recovered/Not Resolved]

NARRATIVE: CASE EVENT DATE: 20210121
